FAERS Safety Report 6465853-4 (Version None)
Quarter: 2009Q4

REPORT INFORMATION
  Report Type: 
  Country: None (occurrence: None)
  Receive Date: 20091127
  Receipt Date: 20091116
  Transmission Date: 20100525
  Serious: Yes (Hospitalization)
  Sender: FDA-Public Use
  Company Number: 235295K09USA

PATIENT
  Age: 32 Year
  Sex: Male
  Weight: 100 kg

DRUGS (3)
  1. REBIF [Suspect]
     Indication: CONDITION AGGRAVATED
     Dosage: 44 MCG, 3 IN 1 WEEKS, SUBCUTANEOUS
     Route: 058
     Dates: start: 20041109, end: 20091001
  2. REBIF [Suspect]
     Indication: MULTIPLE SCLEROSIS
     Dosage: 44 MCG, 3 IN 1 WEEKS, SUBCUTANEOUS
     Route: 058
     Dates: start: 20041109, end: 20091001
  3. STEROIDS (CORTICOSTEROIDS) [Suspect]
     Indication: MULTIPLE SCLEROSIS
     Dates: start: 20040101

REACTIONS (4)
  - GAIT DISTURBANCE [None]
  - OSTEONECROSIS [None]
  - PAIN [None]
  - VITAMIN D DECREASED [None]
